FAERS Safety Report 24437510 (Version 1)
Quarter: 2024Q4

REPORT INFORMATION
  Report Type: Spontaneous
  Country: US (occurrence: None)
  Receive Date: 20241011
  Receipt Date: 20241011
  Transmission Date: 20250114
  Serious: Yes (Other)
  Sender: Public
  Company Number: None

PATIENT
  Age: 63 Year
  Sex: Male
  Weight: 108 kg

DRUGS (1)
  1. CIPROFLOXACIN [Suspect]
     Active Substance: CIPROFLOXACIN
     Indication: Ear infection
     Dosage: OTHER QUANTITY : 4 DROP(S);?FREQUENCY : TWICE A DAY;?
     Route: 001
     Dates: start: 20241011, end: 20241011

REACTIONS (6)
  - Headache [None]
  - Vision blurred [None]
  - Eye pain [None]
  - Palpitations [None]
  - Impaired driving ability [None]
  - Product prescribing error [None]

NARRATIVE: CASE EVENT DATE: 20241011
